FAERS Safety Report 10274071 (Version 2)
Quarter: 2014Q3

REPORT INFORMATION
  Report Type: Spontaneous
  Country: US (occurrence: US)
  Receive Date: 20140702
  Receipt Date: 20140909
  Transmission Date: 20150326
  Serious: Yes (Life-Threatening, Hospitalization, Other)
  Sender: FDA-Public Use
  Company Number: US-BAYER-2014-095840

PATIENT
  Age: 29 Year
  Sex: Female
  Weight: 95 kg

DRUGS (1)
  1. MIRENA [Suspect]
     Active Substance: LEVONORGESTREL
     Indication: CONTRACEPTION
     Dosage: 20 MCG/24HR, CONT
     Route: 015
     Dates: start: 20100817, end: 20121022

REACTIONS (10)
  - Premature delivery [None]
  - Drug ineffective [None]
  - Uterine scar [None]
  - Genital haemorrhage [None]
  - Abdominal pain lower [None]
  - Pregnancy with contraceptive device [None]
  - Injury [None]
  - General physical health deterioration [None]
  - Amniorrhoea [None]
  - Uterine perforation [None]

NARRATIVE: CASE EVENT DATE: 201203
